FAERS Safety Report 7377485-4 (Version None)
Quarter: 2011Q1

REPORT INFORMATION
  Report Type: 
  Country: None (occurrence: None)
  Receive Date: 20110328
  Receipt Date: 20110316
  Transmission Date: 20110831
  Serious: Yes (Other)
  Sender: FDA-Public Use
  Company Number: PHHY2011FR12490

PATIENT
  Sex: Female

DRUGS (6)
  1. MEDIATOR [Suspect]
     Indication: TYPE 2 DIABETES MELLITUS
     Dosage: 150 MG, TID
     Route: 048
     Dates: start: 19951222, end: 20090615
  2. EURELIX [Concomitant]
  3. ZYLORIC [Concomitant]
     Indication: HYPERURICAEMIA
     Route: 048
  4. LOPRESSOR [Suspect]
     Indication: HYPERTENSION
     Dosage: 1 DF, QD
     Route: 048
     Dates: start: 19951222
  5. AMLOR [Suspect]
     Indication: HYPERTENSION
     Dosage: 1 DF, QD
     Route: 048
     Dates: start: 19951222
  6. DIAMICRON [Suspect]
     Indication: TYPE 2 DIABETES MELLITUS
     Dosage: 80 MG, TID
     Route: 048
     Dates: start: 19951222, end: 20090615

REACTIONS (8)
  - MOBILITY DECREASED [None]
  - FALL [None]
  - VERTIGO [None]
  - GAIT DISTURBANCE [None]
  - ASTHENIA [None]
  - SUPRAVENTRICULAR EXTRASYSTOLES [None]
  - BUNDLE BRANCH BLOCK RIGHT [None]
  - DYSPNOEA [None]
